FAERS Safety Report 8369162-8 (Version None)
Quarter: 2012Q2

REPORT INFORMATION
  Report Type: 
  Country: None (occurrence: None)
  Receive Date: 20120518
  Receipt Date: 20120511
  Transmission Date: 20120825
  Serious: Yes (Other)
  Sender: FDA-Public Use
  Company Number: US-NAPPMUNDI-USA-2012-0082705

PATIENT
  Sex: Female
  Weight: 68.027 kg

DRUGS (5)
  1. BUTRANS [Suspect]
     Indication: HEADACHE
     Dosage: 5 MCG/HR, UNK
     Route: 062
     Dates: start: 20120127, end: 20120309
  2. DILAUDID [Concomitant]
     Indication: PRODUCT USED FOR UNKNOWN INDICATION
  3. CELEBREX [Concomitant]
     Indication: PRODUCT USED FOR UNKNOWN INDICATION
  4. FIORINAL                           /01000501/ [Concomitant]
  5. SUMAVEL DOSEPRO [Concomitant]
     Indication: PRODUCT USED FOR UNKNOWN INDICATION

REACTIONS (5)
  - CONVULSION [None]
  - HYPOAESTHESIA [None]
  - ELECTROENCEPHALOGRAM ABNORMAL [None]
  - CARNITINE DECREASED [None]
  - MITOCHONDRIAL CYTOPATHY [None]
